FAERS Safety Report 24728179 (Version 1)
Quarter: 2024Q4

REPORT INFORMATION
  Report Type: Spontaneous
  Country: SI (occurrence: SI)
  Receive Date: 20241212
  Receipt Date: 20241212
  Transmission Date: 20250115
  Serious: Yes (Life-Threatening, Other)
  Sender: PFIZER
  Company Number: SI-PFIZER INC-PV202400160658

PATIENT
  Age: 55 Year
  Sex: Female

DRUGS (3)
  1. DALTEPARIN SODIUM [Suspect]
     Active Substance: DALTEPARIN SODIUM
     Indication: Deep vein thrombosis
     Dosage: THERAPEUTIC DOSES
  2. DALTEPARIN SODIUM [Suspect]
     Active Substance: DALTEPARIN SODIUM
     Indication: Ischaemic stroke
     Dosage: SUBTHERAPEUTIC DOSES
  3. DALTEPARIN SODIUM [Suspect]
     Active Substance: DALTEPARIN SODIUM
     Dosage: THERAPEUTIC DOSES

REACTIONS (2)
  - Lung adenocarcinoma [Unknown]
  - Drug ineffective [Unknown]
